FAERS Safety Report 18171022 (Version 2)
Quarter: 2020Q4

REPORT INFORMATION
  Report Type: Report from Study
  Country: US (occurrence: US)
  Receive Date: 20200819
  Receipt Date: 20201021
  Transmission Date: 20210113
  Serious: Yes (Death, Hospitalization, Other)
  Sender: FDA-Public Use
  Company Number: US-TEVA-2020-US-1815922

PATIENT
  Age: 68 Year
  Sex: Male
  Weight: 130 kg

DRUGS (48)
  1. INSULIN ASPART [Concomitant]
     Active Substance: INSULIN ASPART
     Route: 065
     Dates: start: 20161009, end: 20161212
  2. TIOTROPIUM [Concomitant]
     Active Substance: TIOTROPIUM
     Route: 065
     Dates: start: 20160926, end: 20161213
  3. FAMOTIDINE. [Concomitant]
     Active Substance: FAMOTIDINE
     Route: 065
     Dates: start: 20161004, end: 20161215
  4. ZOSYN [Concomitant]
     Active Substance: PIPERACILLIN SODIUM\TAZOBACTAM SODIUM
     Indication: INFECTION
     Dosage: 4.5 MG/100 ML, EVERY 6 HOURS AL200ML/HOUR OVER 30 MINUTES
     Route: 042
  5. LOPERAMIDE [Concomitant]
     Active Substance: LOPERAMIDE
     Indication: FAECES SOFT
     Dosage: 4 MILLIGRAM DAILY;
     Route: 048
     Dates: start: 20161023, end: 20161023
  6. SPIRONOLACTONE. [Concomitant]
     Active Substance: SPIRONOLACTONE
     Indication: FLUID OVERLOAD
     Dosage: 25 MILLIGRAM DAILY;
     Route: 048
     Dates: start: 20161026, end: 20161115
  7. ONDANSETRON [Concomitant]
     Active Substance: ONDANSETRON
     Indication: CHEMOTHERAPY SIDE EFFECT PROPHYLAXIS
     Dosage: 16 MILLIGRAM DAILY;
     Route: 048
     Dates: start: 20161024, end: 20161031
  8. IDARUBICIN [Suspect]
     Active Substance: IDARUBICIN
     Indication: ACUTE MYELOID LEUKAEMIA
     Dosage: 30 MILLIGRAM DAILY;
     Route: 042
     Dates: start: 20160928, end: 20160930
  9. LASIX [Concomitant]
     Active Substance: FUROSEMIDE
     Route: 065
     Dates: start: 20161022, end: 20161201
  10. TRAMADOL. [Concomitant]
     Active Substance: TRAMADOL
     Route: 065
     Dates: start: 20160924, end: 20161028
  11. LOSARTAN. [Concomitant]
     Active Substance: LOSARTAN
     Route: 065
     Dates: start: 20160924, end: 20161130
  12. MAGIC MOUTHWASH [Concomitant]
     Active Substance: DIPHENHYDRAMINE HYDROCHLORIDE\LIDOCAINE HYDROCHLORIDE\NYSTATIN
     Indication: STOMATITIS
     Route: 065
     Dates: start: 20161011, end: 20161110
  13. LOVENOX [Concomitant]
     Active Substance: ENOXAPARIN SODIUM
     Dates: start: 20160924, end: 20161005
  14. COREG [Concomitant]
     Active Substance: CARVEDILOL
     Dates: start: 20160925, end: 20160927
  15. ALTEPLASE. [Concomitant]
     Active Substance: ALTEPLASE
  16. VORICONAZOLE. [Concomitant]
     Active Substance: VORICONAZOLE
     Indication: FUNGAL INFECTION
     Dosage: 300-600MG
     Route: 042
     Dates: start: 20161019, end: 20161020
  17. VORICONAZOLE. [Concomitant]
     Active Substance: VORICONAZOLE
     Indication: ATYPICAL PNEUMONIA
     Dosage: 300-600MG
     Route: 048
     Dates: start: 20161020, end: 20161024
  18. CALCIUM CARBONATE. [Concomitant]
     Active Substance: CALCIUM CARBONATE
     Indication: GASTROOESOPHAGEAL REFLUX DISEASE
  19. CYTARABINE. [Suspect]
     Active Substance: CYTARABINE
     Dosage: 278 MILLIGRAM DAILY;
     Route: 042
     Dates: start: 20161024, end: 20161030
  20. POTASSIUM CHLORIDE. [Concomitant]
     Active Substance: POTASSIUM CHLORIDE
     Route: 065
     Dates: start: 20160927, end: 20161201
  21. ASP2215 [Suspect]
     Active Substance: GILTERITINIB
     Indication: ACUTE MYELOID LEUKAEMIA
     Dosage: 120 MILLIGRAM DAILY;
     Route: 048
     Dates: start: 20161001, end: 20161014
  22. ASP2215 [Suspect]
     Active Substance: GILTERITINIB
     Dosage: 120 MILLIGRAM DAILY;
     Route: 048
     Dates: start: 20161027, end: 20161109
  23. VANCOMYCIN [Concomitant]
     Active Substance: VANCOMYCIN
     Indication: FEBRILE NEUTROPENIA
     Dosage: 4 GRAM DAILY;
     Route: 042
     Dates: start: 20161012, end: 20161014
  24. FLUTICASONE W/SALMETEROL [Concomitant]
     Active Substance: FLUTICASONE PROPIONATE\SALMETEROL XINAFOATE
     Route: 065
     Dates: start: 20160923, end: 20161213
  25. ACYCLOVIR. [Concomitant]
     Active Substance: ACYCLOVIR
     Route: 065
     Dates: start: 20160923, end: 20161214
  26. TYLENOL [Concomitant]
     Active Substance: ACETAMINOPHEN
  27. POSACONAZOLE [Concomitant]
     Active Substance: POSACONAZOLE
     Dates: start: 20161102, end: 20161213
  28. TAMSULOSIN [Concomitant]
     Active Substance: TAMSULOSIN
     Route: 065
     Dates: start: 20160925, end: 20161215
  29. CATHFLO ACTIVASE [Concomitant]
     Active Substance: ALTEPLASE
     Dates: start: 20160923, end: 20161216
  30. CEFUROXIME AXETIT [Concomitant]
  31. DIPHENHYDRAMINE. [Concomitant]
     Active Substance: DIPHENHYDRAMINE
     Indication: PRURITUS
     Dosage: 50 MILLIGRAM DAILY;
     Route: 048
     Dates: start: 20161020, end: 20161020
  32. POSACONAZOLE [Concomitant]
     Active Substance: POSACONAZOLE
     Indication: FUNGAL INFECTION
     Dosage: 300 MILLIGRAM DAILY;
     Route: 048
     Dates: start: 20161024, end: 20161031
  33. MAGNESIUM SULFATE. [Concomitant]
     Active Substance: MAGNESIUM SULFATE
     Indication: FLUID REPLACEMENT
     Dates: start: 20161012, end: 20161112
  34. IDARUBICIN [Suspect]
     Active Substance: IDARUBICIN
     Dosage: 30 MILLIGRAM DAILY;
     Route: 042
     Dates: start: 20161024, end: 20161026
  35. CYTARABINE. [Suspect]
     Active Substance: CYTARABINE
     Indication: ACUTE MYELOID LEUKAEMIA
     Dosage: 275 MILLIGRAM DAILY;
     Route: 042
     Dates: start: 20160928, end: 20161004
  36. AMLODIPINE [Concomitant]
     Active Substance: AMLODIPINE BESYLATE
     Route: 065
     Dates: start: 20160924, end: 20161130
  37. ZYLOPRIM [Concomitant]
     Active Substance: ALLOPURINOL
     Dates: start: 20160924, end: 20161003
  38. NORVASC [Concomitant]
     Active Substance: AMLODIPINE BESYLATE
     Dates: start: 20160924, end: 20161201
  39. FUROSEMIDE. [Concomitant]
     Active Substance: FUROSEMIDE
  40. LABETALOL [Concomitant]
     Active Substance: LABETALOL\LABETALOL HYDROCHLORIDE
     Route: 065
     Dates: start: 20161002, end: 20161201
  41. LORATADINE. [Concomitant]
     Active Substance: LORATADINE
     Route: 065
     Dates: start: 20161002, end: 20161215
  42. CEFTIN [Concomitant]
     Active Substance: CEFUROXIME AXETIL
     Dates: start: 20160923, end: 20161012
  43. LEVAQUIN [Concomitant]
     Active Substance: LEVOFLOXACIN
     Indication: BACTERIAL INFECTION
     Route: 048
     Dates: start: 20161013, end: 20161019
  44. OXYCODONE [Concomitant]
     Active Substance: OXYCODONE
     Indication: MUSCULOSKELETAL PAIN
     Dosage: 4 MILLIGRAM DAILY;
     Route: 048
     Dates: start: 20161021, end: 20161021
  45. ALBUTEROL. [Concomitant]
     Active Substance: ALBUTEROL
     Route: 065
     Dates: start: 20160923, end: 20161213
  46. SODIUM CHLORIDE. [Concomitant]
     Active Substance: SODIUM CHLORIDE
     Route: 065
     Dates: start: 20160926, end: 20161213
  47. ZYVOX [Concomitant]
     Active Substance: LINEZOLID
     Indication: INFECTION
     Route: 042
     Dates: start: 20161014, end: 20161017
  48. CALCIUM CARBONATE. [Concomitant]
     Active Substance: CALCIUM CARBONATE
     Indication: GASTROOESOPHAGEAL REFLUX DISEASE
     Dosage: 500 MILLIGRAM DAILY;
     Route: 048

REACTIONS (4)
  - Bronchopulmonary aspergillosis [Fatal]
  - Febrile neutropenia [Recovered/Resolved]
  - Enterococcal infection [Recovered/Resolved]
  - Enterococcal bacteraemia [Recovered/Resolved]

NARRATIVE: CASE EVENT DATE: 20161012
